FAERS Safety Report 13241354 (Version 1)
Quarter: 2017Q1

REPORT INFORMATION
  Report Type: Report from Study
  Country: BR (occurrence: BR)
  Receive Date: 20170216
  Receipt Date: 20170216
  Transmission Date: 20170428
  Serious: Yes (Hospitalization)
  Sender: FDA-Public Use
  Company Number: PHHY2017BR021207

PATIENT
  Sex: Female
  Weight: 70 kg

DRUGS (2)
  1. FORASEQ [Suspect]
     Active Substance: BUDESONIDE\FORMOTEROL FUMARATE
     Indication: BRONCHIAL OEDEMA
     Dosage: (FORMOTEROL FUMARATE 12 UG, BUDESONIDE 400 UG)
     Route: 065
  2. FORASEQ [Suspect]
     Active Substance: BUDESONIDE\FORMOTEROL FUMARATE
     Indication: THROMBOSIS
     Dosage: 1 DF (FORMOTEROL FUMARATE 12 UG, BUDESONIDE 400 UG), TID
     Route: 055
     Dates: start: 20170124

REACTIONS (10)
  - Product use issue [Unknown]
  - Thrombosis [Recovering/Resolving]
  - Bronchitis [Recovering/Resolving]
  - Dyspnoea [Recovering/Resolving]
  - Dysstasia [Unknown]
  - Condition aggravated [Unknown]
  - Asthma [Unknown]
  - Wheezing [Unknown]
  - Bronchial oedema [Unknown]
  - Malaise [Unknown]
